FAERS Safety Report 7007660-X (Version None)
Quarter: 2010Q3

REPORT INFORMATION
  Report Type: 
  Country: None (occurrence: None)
  Receive Date: 20100922
  Receipt Date: 20100921
  Transmission Date: 20110219
  Serious: Yes (Death, Life-Threatening, Hospitalization, Disabling, Other)
  Sender: FDA-Public Use
  Company Number: JP-PFIZER INC-2010013515

PATIENT
  Age: 79 Year
  Sex: Female

DRUGS (13)
  1. NOVASTAN [Suspect]
     Indication: HEPARIN-INDUCED THROMBOCYTOPENIA
     Dosage: 0.008 MCG/KG/MIN, UNK
     Route: 041
     Dates: start: 20090709, end: 20090717
  2. NAFAMOSTAT [Suspect]
     Indication: CONTINUOUS HAEMODIAFILTRATION
     Dosage: 240 MG, UNK
     Route: 051
     Dates: start: 20090706, end: 20090717
  3. HEPARIN SODIUM [Suspect]
     Dosage: UNK
     Route: 051
     Dates: start: 20090702
  4. RECOMODULIN [Suspect]
     Route: 051
  5. ELASPOL [Concomitant]
     Dosage: 300 MG, UNK
     Route: 042
     Dates: start: 20090702, end: 20090713
  6. MIYARI BACTERIA [Concomitant]
     Indication: PROPHYLAXIS
     Dosage: 3 G, UNK
     Route: 048
     Dates: start: 20090702, end: 20090717
  7. MARZULENE S [Concomitant]
     Indication: PROPHYLAXIS
     Dosage: 3 G, UNK
     Route: 048
     Dates: start: 20090702, end: 20090717
  8. MEROPEN [Concomitant]
     Dosage: 2 G, UNK
     Route: 042
     Dates: start: 20090702, end: 20090710
  9. ANTHROBIN P [Concomitant]
     Dosage: 1.50 KIU, UNK
     Route: 042
     Dates: start: 20090705, end: 20090711
  10. VANCOMYCIN [Concomitant]
     Dosage: 1.5 G, UNK
     Route: 042
     Dates: start: 20090705, end: 20090709
  11. PRODIF [Concomitant]
     Dosage: 200 MG, UNK
     Route: 042
     Dates: start: 20090706, end: 20090716
  12. MODACIN [Concomitant]
     Dosage: 4 G, UNK
     Route: 042
     Dates: start: 20090710, end: 20090716
  13. PROPOFOL [Concomitant]
     Indication: SEDATION
     Dosage: 1440 MG, DAILY
     Route: 042
     Dates: start: 20090705, end: 20090710

REACTIONS (6)
  - ACTIVATED PARTIAL THROMBOPLASTIN TIME ABNORMAL [None]
  - CEREBRAL HAEMORRHAGE [None]
  - FIBRIN D DIMER INCREASED [None]
  - MULTI-ORGAN FAILURE [None]
  - PROTHROMBIN TIME ABNORMAL [None]
  - SEPSIS [None]
